FAERS Safety Report 19180823 (Version 1)
Quarter: 2021Q2

REPORT INFORMATION
  Report Type: Spontaneous
  Country: GB (occurrence: GB)
  Receive Date: 20210426
  Receipt Date: 20210426
  Transmission Date: 20210717
  Serious: Yes (Life-Threatening, Hospitalization, Other)
  Sender: FDA-Public Use
  Company Number: GB-PFIZER INC-2021405269

PATIENT
  Age: 66 Year
  Sex: Female
  Weight: 90.4 kg

DRUGS (13)
  1. DIAZEPAM. [Concomitant]
     Active Substance: DIAZEPAM
  2. ASTRAZENECA COVID?19 VACCINE [Suspect]
     Active Substance: AZD-1222
     Indication: COVID-19 IMMUNISATION
     Dosage: 1 DOSE IM STAT
     Route: 030
     Dates: start: 20210211, end: 20210211
  3. PREGABALIN. [Concomitant]
     Active Substance: PREGABALIN
  4. APIXABAN [Concomitant]
     Active Substance: APIXABAN
  5. FOLIC ACID. [Concomitant]
     Active Substance: FOLIC ACID
  6. MORPHINE SULPHATE [Concomitant]
     Active Substance: MORPHINE SULFATE
  7. PARACETAMOL [Concomitant]
     Active Substance: ACETAMINOPHEN
     Dosage: UNK
  8. DEXAMETHASONE. [Concomitant]
     Active Substance: DEXAMETHASONE
     Indication: PROPHYLAXIS OF NAUSEA AND VOMITING
     Dosage: UNK, SHORT TERM AFTER EACH CYCLE OF CHEMOTHERAPY
  9. METOCLOPRAMIDE. [Concomitant]
     Active Substance: METOCLOPRAMIDE
     Indication: PROPHYLAXIS OF NAUSEA AND VOMITING
     Dosage: UNK, AS NEEDED
  10. CARBOPLATIN. [Suspect]
     Active Substance: CARBOPLATIN
     Indication: ENDOMETRIAL CANCER
     Dosage: 500 MG IN 500ML 5% GLUCOSE GIVEN OVER 1 HOUR
     Route: 042
     Dates: start: 20210301
  11. PACLITAXEL. [Suspect]
     Active Substance: PACLITAXEL
     Indication: ENDOMETRIAL CANCER
     Dosage: 336 MG IN 306 ML SOD.CHLORIDE 0.9% GIVEN OVER 3 HOURS
     Route: 042
     Dates: start: 20210301
  12. CYANOCOBALAMIN. [Concomitant]
     Active Substance: CYANOCOBALAMIN
  13. ONDANSETRON [Concomitant]
     Active Substance: ONDANSETRON
     Indication: PROPHYLAXIS OF NAUSEA AND VOMITING
     Dosage: UNK, SHORT TERM AFTER EACH CYCLE OF CHEMOTHERAPY

REACTIONS (7)
  - Leukopenia [Recovered/Resolved]
  - Thrombocytopenia [Recovered/Resolved]
  - Neutropenic sepsis [Recovered/Resolved]
  - Acute kidney injury [Recovered/Resolved with Sequelae]
  - Off label use [Unknown]
  - Haemoglobin decreased [Unknown]
  - Vomiting [Unknown]

NARRATIVE: CASE EVENT DATE: 20210301
